FAERS Safety Report 23109385 (Version 1)
Quarter: 2023Q4

REPORT INFORMATION
  Report Type: Spontaneous
  Country: US (occurrence: None)
  Receive Date: 20231025
  Receipt Date: 20231025
  Transmission Date: 20240110
  Serious: No
  Sender: FDA-Public Use
  Company Number: None

PATIENT
  Age: 24 Year
  Sex: Female

DRUGS (1)
  1. OLD SPICE TIMBER WITH SANDALWOOD INVISIBLE (ALUMINUM ZIRCONIUM TRICHLO [Suspect]
     Active Substance: ALUMINUM ZIRCONIUM TRICHLOROHYDREX GLY
     Indication: Personal hygiene
     Dates: start: 20231020, end: 20231025

REACTIONS (2)
  - Rash pruritic [None]
  - Inflammation [None]

NARRATIVE: CASE EVENT DATE: 20231025
